FAERS Safety Report 21249992 (Version 1)
Quarter: 2022Q3

REPORT INFORMATION
  Report Type: Spontaneous
  Country: US (occurrence: US)
  Receive Date: 20220824
  Receipt Date: 20220824
  Transmission Date: 20221027
  Serious: No
  Sender: FDA-Public Use
  Company Number: US-UPSHER-SMITH LABORATORIES, LLC-2022USL00377

PATIENT
  Age: 75 Year
  Sex: Female
  Weight: 59.864 kg

DRUGS (2)
  1. EXEMESTANE [Suspect]
     Active Substance: EXEMESTANE
     Indication: Breast cancer
     Dosage: 25 MG, 1X/DAY
     Route: 048
     Dates: start: 202205, end: 202205
  2. EXEMESTANE [Suspect]
     Active Substance: EXEMESTANE
     Indication: Lung neoplasm malignant

REACTIONS (3)
  - Somnambulism [Recovering/Resolving]
  - Sleep talking [Recovering/Resolving]
  - Abnormal sleep-related event [Recovered/Resolved]

NARRATIVE: CASE EVENT DATE: 20220501
